FAERS Safety Report 12652363 (Version 1)
Quarter: 2016Q3

REPORT INFORMATION
  Report Type: Spontaneous
  Country: JP (occurrence: JP)
  Receive Date: 20160815
  Receipt Date: 20160815
  Transmission Date: 20161109
  Serious: Yes (Hospitalization)
  Sender: FDA-Public Use
  Company Number: JP-BAYER-2016-157016

PATIENT
  Sex: Female

DRUGS (1)
  1. YAZ [Suspect]
     Active Substance: DROSPIRENONE\ETHINYL ESTRADIOL
     Indication: ENDOMETRIOSIS
     Dosage: UNK
     Route: 048
     Dates: start: 2011, end: 20160804

REACTIONS (4)
  - Off label use [None]
  - Polymenorrhoea [None]
  - Herpes zoster oticus [None]
  - Incorrect drug administration duration [None]

NARRATIVE: CASE EVENT DATE: 20160804
